FAERS Safety Report 11045742 (Version 2)
Quarter: 2015Q2

REPORT INFORMATION
  Report Type: Spontaneous
  Country: CA (occurrence: CA)
  Receive Date: 20150417
  Receipt Date: 20150424
  Transmission Date: 20150821
  Serious: Yes (Death, Hospitalization, Other)
  Sender: FDA-Public Use
  Company Number: CA-MERCK-1504CAN015029

PATIENT
  Age: 65 Year
  Sex: Female
  Weight: 67.12 kg

DRUGS (11)
  1. HYDROCHLOROTHIAZIDE. [Concomitant]
     Active Substance: HYDROCHLOROTHIAZIDE
     Dosage: UNK, DAILY (DIE)
     Route: 048
  2. PAROXETINE [Concomitant]
     Active Substance: PAROXETINE\PAROXETINE HYDROCHLORIDE
     Dosage: UNK, DAILY (DIE)
     Route: 048
  3. METFORMIN [Concomitant]
     Active Substance: METFORMIN HYDROCHLORIDE
     Dosage: UNK UNK, BID
  4. JANUVIA [Suspect]
     Active Substance: SITAGLIPTIN PHOSPHATE
     Indication: TYPE 2 DIABETES MELLITUS
     Dosage: DAILY  (DIE)
     Route: 048
     Dates: start: 20131210, end: 20131212
  5. EURO FER (FERROUS FUMARATE) [Concomitant]
     Dosage: UNK, BID
     Route: 048
  6. AMINOSALICYLIC ACID [Concomitant]
     Active Substance: AMINOSALICYLIC ACID
     Dosage: 2400 MG, BID,( 6 TABLETS BID)
     Route: 048
  7. DUOTRAV [Concomitant]
     Active Substance: TIMOLOL\TRAVOPROST
     Dosage: 1 GTT OU, DAILY (DIE)
  8. PANTOPRAZOLE [Concomitant]
     Active Substance: PANTOPRAZOLE SODIUM
     Dosage: UNK, DAILY (DIE)
     Route: 048
  9. GLYBURIDE. [Concomitant]
     Active Substance: GLYBURIDE
     Dosage: UNK, DAILY (DIE)
     Route: 048
  10. LISINOPRIL. [Concomitant]
     Active Substance: LISINOPRIL
     Dosage: UNK, DAILY (DIE)
     Route: 048
  11. SIMVASTATIN. [Concomitant]
     Active Substance: SIMVASTATIN
     Dosage: UNK, DAILY (DIE)

REACTIONS (2)
  - Pancreatitis [Unknown]
  - Death [Fatal]

NARRATIVE: CASE EVENT DATE: 20131213
